FAERS Safety Report 4383603-2 (Version None)
Quarter: 2004Q2

REPORT INFORMATION
  Report Type: 
  Country: None (occurrence: None)
  Receive Date: 20040618
  Receipt Date: 20040608
  Transmission Date: 20050107
  Serious: Yes (Death)
  Sender: FDA-Public Use
  Company Number: 04P-087-0263312-00

PATIENT
  Age: 53 Year
  Sex: Male

DRUGS (1)
  1. CEFZON CAPSULES (OMNICEF) (CEFDINIR) (CEFDINIR) [Suspect]
     Dosage: ORAL
     Route: 048
     Dates: start: 20010701

REACTIONS (2)
  - MULTI-ORGAN FAILURE [None]
  - TOXIC EPIDERMAL NECROLYSIS [None]
